FAERS Safety Report 9523882 (Version 1)
Quarter: 2013Q1

REPORT INFORMATION
  Report Type: Spontaneous
  Country: US (occurrence: None)
  Receive Date: 20130305
  Receipt Date: 20130305
  Transmission Date: 20140127
  Serious: Yes (Other)
  Sender: FDA-Public Use
  Company Number: 163-21880-12020077

PATIENT
  Sex: 0

DRUGS (3)
  1. REVLIMID (LENALIDOMIDE) (CAPSULES) [Suspect]
     Indication: PLASMA CELL MYELOMA
     Dosage: PO
  2. PLERIXAFOR (PLERIXAFOR) (UNKNOWN) [Suspect]
     Indication: PLASMA CELL MYELOMA
     Dosage: 0.24 MG/KG, STARTING ON DAY 5 EARLY MORNINGS (6-7AM), IV
     Route: 042
  3. G-CSF (GRANULOCYTE COLONY STIMULATING FACTOR) (UNKNOWN)? [Concomitant]

REACTIONS (6)
  - Thrombocytopenia [None]
  - Abdominal distension [None]
  - Nausea [None]
  - Diarrhoea [None]
  - Abdominal pain [None]
  - Dizziness [None]
